FAERS Safety Report 9508227 (Version 1)
Quarter: 2013Q1

REPORT INFORMATION
  Report Type: Spontaneous
  Country: US (occurrence: None)
  Receive Date: 20130305
  Receipt Date: 20130305
  Transmission Date: 20140127
  Serious: Yes (Other)
  Sender: FDA-Public Use
  Company Number: 163-21880-11110123

PATIENT
  Age: 77 Year
  Sex: Male

DRUGS (15)
  1. REVLIMID (LENALIDOMIDE) (25 MILLIGRAM, CAPSULES) [Suspect]
     Indication: PLASMA CELL MYELOMA
     Dosage: CAPSULE, 25 MG, 21 IN 28 D, PO
     Dates: start: 20110214
  2. METFORMIN [Concomitant]
  3. VITAMIN D (ERGOCALCIFEROL) [Concomitant]
  4. COUMADIN (WARFARIN SODIUM) [Concomitant]
  5. METOPROLOL SUCCINATE [Concomitant]
  6. LANOXIN (DIGOXIN) [Concomitant]
  7. FLOMAX (TAMSULOSIN HYDROCHLORIDE) [Concomitant]
  8. LASIX (FUROSEMIDE) [Concomitant]
  9. KLOR-CON (POTASSIUM CHLORIDE) [Concomitant]
  10. VITAMIN C [Concomitant]
  11. ALLOPURINOL [Concomitant]
  12. RANITIDINE [Concomitant]
  13. MULTIVITAMINS [Concomitant]
  14. NITROSTAT (GLYCERYL TRINITRATE) [Concomitant]
  15. ASA (ACETYLSALICYLIC ACID) [Concomitant]

REACTIONS (1)
  - Rash macular [None]
